FAERS Safety Report 7016022-0 (Version None)
Quarter: 2010Q3

REPORT INFORMATION
  Report Type: 
  Country: None (occurrence: None)
  Receive Date: 20100927
  Receipt Date: 20100914
  Transmission Date: 20110219
  Serious: Yes (Other)
  Sender: FDA-Public Use
  Company Number: FR-WATSON-2010-12419

PATIENT
  Age: 63 Year
  Sex: Male

DRUGS (1)
  1. METHYLPREDNISOLONE ACETATE [Suspect]
     Indication: MULTIPLE SCLEROSIS
     Dosage: 1 G, UNK
     Route: 040
     Dates: start: 20080501

REACTIONS (1)
  - THROMBOCYTOPENIA [None]
